FAERS Safety Report 13559009 (Version 3)
Quarter: 2017Q3

REPORT INFORMATION
  Report Type: Spontaneous
  Country: JP (occurrence: JP)
  Receive Date: 20170518
  Receipt Date: 20170801
  Transmission Date: 20171127
  Serious: Yes (Life-Threatening, Hospitalization, Other)
  Sender: FDA-Public Use
  Company Number: PHJP2017JP016328

PATIENT
  Age: 60 Year
  Sex: Female
  Weight: 38.7 kg

DRUGS (5)
  1. LOXONIN [Concomitant]
     Active Substance: LOXOPROFEN SODIUM
     Indication: BACK PAIN
     Dosage: 100 MG, UNK
     Route: 062
     Dates: start: 20170131, end: 20170401
  2. CELECOX [Suspect]
     Active Substance: CELECOXIB
     Indication: BACK PAIN
     Dosage: 100 MG, UNK
     Route: 048
     Dates: start: 20170131, end: 20170401
  3. MAGNESIUM [Concomitant]
     Active Substance: MAGNESIUM
     Indication: CONSTIPATION
     Dosage: 250 MG, UNK
     Route: 048
     Dates: start: 20170314, end: 20170401
  4. AROMASIN [Suspect]
     Active Substance: EXEMESTANE
     Indication: BREAST CANCER METASTATIC
     Dosage: 25 MG, UNK
     Route: 048
     Dates: start: 20170321, end: 20170322
  5. AFINITOR [Suspect]
     Active Substance: EVEROLIMUS
     Indication: BREAST CANCER METASTATIC
     Dosage: 10 MG, QD
     Route: 048
     Dates: start: 20170321, end: 20170322

REACTIONS (11)
  - Stomatitis [Recovering/Resolving]
  - Anuria [Unknown]
  - Cancer pain [Unknown]
  - Tubulointerstitial nephritis [Not Recovered/Not Resolved]
  - Urine output decreased [Unknown]
  - Metastasis [Unknown]
  - Pleural effusion [Unknown]
  - Hyperkalaemia [Unknown]
  - Dehydration [Unknown]
  - Diarrhoea [Recovered/Resolved]
  - Hypophagia [Unknown]

NARRATIVE: CASE EVENT DATE: 20170322
